FAERS Safety Report 5772488-5 (Version None)
Quarter: 2008Q2

REPORT INFORMATION
  Report Type: 
  Country: None (occurrence: None)
  Receive Date: 20080613
  Receipt Date: 20080423
  Transmission Date: 20081010
  Serious: No
  Sender: FDA-Public Use
  Company Number: US-BAYER-200811921BCC

PATIENT
  Age: 83 Year
  Sex: Female
  Weight: 54 kg

DRUGS (4)
  1. ALEVE (CAPLET) [Suspect]
     Indication: ARTHRALGIA
     Dosage: TOTAL DAILY DOSE: 220 MG  UNIT DOSE: 220 MG
     Route: 048
     Dates: start: 20080401, end: 20080401
  2. ALEVE (CAPLET) [Suspect]
     Route: 048
     Dates: start: 20080401
  3. THYROID TAB [Concomitant]
  4. ENALAPRIL MALEATE [Concomitant]

REACTIONS (1)
  - ARTHRALGIA [None]
